FAERS Safety Report 18099448 (Version 1)
Quarter: 2020Q3

REPORT INFORMATION
  Report Type: Spontaneous
  Country: US (occurrence: US)
  Receive Date: 20200731
  Receipt Date: 20200731
  Transmission Date: 20201103
  Serious: Yes (Hospitalization, Other)
  Sender: FDA-Public Use
  Company Number: US-PURDUE-USA-2020-0160109

PATIENT
  Sex: Female

DRUGS (52)
  1. OXYCODONE/ ACETAMINOPHEN TABLETS [Suspect]
     Active Substance: ACETAMINOPHEN\OXYCODONE HYDROCHLORIDE
     Dosage: 10?325 MG, 1 TABLET EVERY 6 HOURS
     Route: 048
     Dates: start: 20150821, end: 20160510
  2. OXYCODONE/ ACETAMINOPHEN TABLETS [Suspect]
     Active Substance: ACETAMINOPHEN\OXYCODONE HYDROCHLORIDE
     Dosage: 10?325 MG, 1 TABLET EVERY 4 HOURS
     Route: 048
     Dates: start: 20150122, end: 20150722
  3. OXYCODONE/ ACETAMINOPHEN TABLETS [Suspect]
     Active Substance: ACETAMINOPHEN\OXYCODONE HYDROCHLORIDE
     Dosage: 10?650 MG, 1 TABLET EVERY 6?8 HOURS
     Route: 048
     Dates: start: 20080617, end: 20080922
  4. OXYCODONE/ ACETAMINOPHEN TABLETS [Suspect]
     Active Substance: ACETAMINOPHEN\OXYCODONE HYDROCHLORIDE
     Dosage: 10?325 MG TABLET EVERY 6 HOURS
     Route: 048
     Dates: start: 20170429, end: 20180117
  5. OXYCODONE/ ACETAMINOPHEN TABLETS [Suspect]
     Active Substance: ACETAMINOPHEN\OXYCODONE HYDROCHLORIDE
     Dosage: 10?325 MG TABLET EVERY 4 HOURS
     Route: 048
     Dates: start: 20170429
  6. HYDROCODONE BITARTRATE AND ACETAMINOPHEN [Suspect]
     Active Substance: ACETAMINOPHEN\HYDROCODONE BITARTRATE
     Indication: PAIN
     Dosage: 5?500 TABLET EVERY 4?6 HOURS
     Route: 048
     Dates: start: 20100210, end: 20110926
  7. HYDROCODONE BITARTRATE AND ACETAMINOPHEN [Suspect]
     Active Substance: ACETAMINOPHEN\HYDROCODONE BITARTRATE
     Dosage: 7.5?325 TABLET EVERY 6?8 HOURS
     Route: 048
     Dates: start: 20131028, end: 20131216
  8. OXYCONTIN [Suspect]
     Active Substance: OXYCODONE HYDROCHLORIDE
     Dosage: 20 MG TABLET, THREE TIMES DAILY
     Route: 048
     Dates: start: 20100917, end: 20101015
  9. OXYCONTIN [Suspect]
     Active Substance: OXYCODONE HYDROCHLORIDE
     Dosage: 80 MG TABLET,EVERY 12 HOURS
     Route: 048
     Dates: start: 20121206
  10. OXYCODONE/ ACETAMINOPHEN TABLETS [Suspect]
     Active Substance: ACETAMINOPHEN\OXYCODONE HYDROCHLORIDE
     Dosage: 10?325 MG, 1 TABLET EVERY 6?8 HOURS
     Route: 048
     Dates: start: 20150722, end: 20150821
  11. OXYCODONE/ ACETAMINOPHEN TABLETS [Suspect]
     Active Substance: ACETAMINOPHEN\OXYCODONE HYDROCHLORIDE
     Dosage: 10?325 MG, 1 TABLET EVERY 6 HOURS
     Route: 048
     Dates: start: 20131204, end: 20150122
  12. OXYCONTIN [Suspect]
     Active Substance: OXYCODONE HYDROCHLORIDE
     Dosage: 20 MG TABLET THREE TIMES DAILY
     Route: 048
     Dates: start: 20091125, end: 20100816
  13. OXYCONTIN [Suspect]
     Active Substance: OXYCODONE HYDROCHLORIDE
     Dosage: 40 MG TABLET, TWICE DAILY
     Route: 048
     Dates: start: 20130613, end: 20141002
  14. OXYCODONE HCL CR TABLETS (SIMILAR TO NDA 22?272) [Suspect]
     Active Substance: OXYCODONE HYDROCHLORIDE
     Dosage: 10 MG TABLET, TWICE DAILY
     Route: 048
     Dates: start: 20180216
  15. HYDROCODONE BITARTRATE AND ACETAMINOPHEN [Suspect]
     Active Substance: ACETAMINOPHEN\HYDROCODONE BITARTRATE
     Dosage: 10?325 TABLET EVERY 4?6 HOURS
     Route: 048
     Dates: start: 20130510
  16. OPANA [Suspect]
     Active Substance: OXYMORPHONE HYDROCHLORIDE
     Dosage: 15 MG TABLET TWICE DAILY
     Route: 048
     Dates: start: 20160510
  17. OXYCONTIN [Suspect]
     Active Substance: OXYCODONE HYDROCHLORIDE
     Indication: PAIN
     Dosage: 10 MG TABLET TWICE DAILY
     Route: 048
     Dates: start: 20091012
  18. OXYCONTIN [Suspect]
     Active Substance: OXYCODONE HYDROCHLORIDE
     Dosage: 20 MG TABLET, THREE TIMES DAILY
     Route: 048
     Dates: start: 20101115, end: 20110113
  19. OXYCONTIN [Suspect]
     Active Substance: OXYCODONE HYDROCHLORIDE
     Dosage: 20 MG TABLET, THREE TIMES DAILY
     Route: 048
     Dates: start: 20110315, end: 20130809
  20. OXYCODONE HCL CR TABLETS (SIMILAR TO NDA 22?272) [Suspect]
     Active Substance: OXYCODONE HYDROCHLORIDE
     Indication: PRODUCT USED FOR UNKNOWN INDICATION
     Dosage: 5 MG TABLET, 2 TABLETS EVERY 4?6 HOUR
     Route: 048
     Dates: start: 20090916
  21. OXYCODONE/ ACETAMINOPHEN TABLETS [Suspect]
     Active Substance: ACETAMINOPHEN\OXYCODONE HYDROCHLORIDE
     Indication: PAIN
     Dosage: 10?325 MG TABLET EVERY 6 HOURS
     Route: 048
     Dates: start: 20130518
  22. OXYCODONE/ ACETAMINOPHEN TABLETS [Suspect]
     Active Substance: ACETAMINOPHEN\OXYCODONE HYDROCHLORIDE
     Dosage: 10?325 MG TABLET TWICE TO FOUR TIMES DAILY
     Route: 048
     Dates: start: 20130404, end: 20130518
  23. OXYCODONE/ ACETAMINOPHEN TABLETS [Suspect]
     Active Substance: ACETAMINOPHEN\OXYCODONE HYDROCHLORIDE
     Dosage: 10?325 MG, 1 TABLET EVERY 12 HOURS
     Route: 048
     Dates: start: 20160510, end: 20160610
  24. HYDROCODONE BITARTRATE AND ACETAMINOPHEN [Suspect]
     Active Substance: ACETAMINOPHEN\HYDROCODONE BITARTRATE
     Dosage: 5?500 2 TABLETS, FOUR TIMES DAILY
     Route: 048
     Dates: start: 20110926
  25. HYDROCODONE BITARTRATE AND ACETAMINOPHEN [Suspect]
     Active Substance: ACETAMINOPHEN\HYDROCODONE BITARTRATE
     Dosage: 7.5?325 TABLET EVERY 4 HOURS
     Route: 048
     Dates: start: 20130729, end: 20130930
  26. HYDROCODONE BITARTRATE AND ACETAMINOPHEN [Suspect]
     Active Substance: ACETAMINOPHEN\HYDROCODONE BITARTRATE
     Dosage: 7.5?325 MG TABLET EVERY 4?6 HOURS
     Route: 048
     Dates: start: 20131216
  27. OPANA [Suspect]
     Active Substance: OXYMORPHONE HYDROCHLORIDE
     Indication: PRODUCT USED FOR UNKNOWN INDICATION
     Dosage: 10 MG TABLET TWICE DAILY
     Route: 048
     Dates: start: 20160425, end: 20160510
  28. ENDOCET [Suspect]
     Active Substance: ACETAMINOPHEN\OXYCODONE HYDROCHLORIDE
     Dosage: 10?325 MG
     Route: 048
  29. OXYCONTIN [Suspect]
     Active Substance: OXYCODONE HYDROCHLORIDE
     Dosage: 20 MG TABLET, THREE TIMES DAILY
     Route: 048
     Dates: start: 20140113
  30. OXYCONTIN [Suspect]
     Active Substance: OXYCODONE HYDROCHLORIDE
     Dosage: 40 MG TABLET, THREE TIMES DAILY
     Route: 048
     Dates: start: 20110414, end: 20130613
  31. OXYCONTIN [Suspect]
     Active Substance: OXYCODONE HYDROCHLORIDE
     Dosage: 40 MG TABLET, EVERY 8 HOURS
     Route: 048
     Dates: start: 20141002, end: 20150723
  32. OXYCONTIN [Suspect]
     Active Substance: OXYCODONE HYDROCHLORIDE
     Dosage: 80 MG TABLET, EVERY 12 HOURS
     Route: 048
     Dates: start: 20120718, end: 20121105
  33. OXYCONTIN [Suspect]
     Active Substance: OXYCODONE HYDROCHLORIDE
     Dosage: 80 MG TABLET, THREE TIMES DAILY
     Route: 048
     Dates: start: 20121105, end: 20121206
  34. OXYCODONE/ ACETAMINOPHEN TABLETS [Suspect]
     Active Substance: ACETAMINOPHEN\OXYCODONE HYDROCHLORIDE
     Dosage: 10?325 MG TABLET. 1 TABLET EVERY 6 TO 8 HOURS
     Route: 048
     Dates: start: 20081023, end: 20090216
  35. OXYCODONE/ ACETAMINOPHEN TABLETS [Suspect]
     Active Substance: ACETAMINOPHEN\OXYCODONE HYDROCHLORIDE
     Dosage: 10?325 MG, 1 TABLET EVERY 4?6 HOURS
     Route: 048
     Dates: start: 20160610, end: 20160808
  36. OXYCONTIN [Suspect]
     Active Substance: OXYCODONE HYDROCHLORIDE
     Dosage: 20 MG TABLET TWICE DAILY
     Route: 048
     Dates: start: 20091026, end: 20091125
  37. OXYCONTIN [Suspect]
     Active Substance: OXYCODONE HYDROCHLORIDE
     Dosage: 20 MG TABLET, TWICE DAILY
     Route: 048
     Dates: start: 20110113, end: 20110315
  38. OXYCONTIN [Suspect]
     Active Substance: OXYCODONE HYDROCHLORIDE
     Dosage: 40 MG TABLET, EVERY 12 HOURS
     Route: 048
     Dates: start: 20150723
  39. OXYCONTIN [Suspect]
     Active Substance: OXYCODONE HYDROCHLORIDE
     Dosage: 60 MG TABLET, EVERY 12 HOURS
     Route: 048
     Dates: start: 20120222
  40. OXYCODONE/ ACETAMINOPHEN TABLETS [Suspect]
     Active Substance: ACETAMINOPHEN\OXYCODONE HYDROCHLORIDE
     Dosage: 10?325 MG, 1 TABLET EVERY 4 HOURS
     Route: 048
     Dates: start: 20160808
  41. OXYCODONE/ ACETAMINOPHEN TABLETS [Suspect]
     Active Substance: ACETAMINOPHEN\OXYCODONE HYDROCHLORIDE
     Dosage: 10?325 MG TABLET EVERY 4 HOURS
     Route: 048
     Dates: start: 20160907, end: 20170105
  42. OXYCODONE/ ACETAMINOPHEN TABLETS [Suspect]
     Active Substance: ACETAMINOPHEN\OXYCODONE HYDROCHLORIDE
     Dosage: 10?325 MG TABLET. 1?2 TABLET EVERY 4 TO 6 HOURS
     Route: 048
     Dates: start: 20090216, end: 20090623
  43. OXYCODONE/ ACETAMINOPHEN TABLETS [Suspect]
     Active Substance: ACETAMINOPHEN\OXYCODONE HYDROCHLORIDE
     Dosage: 10?325 MG TABLET EVERY 8 HOURS
     Route: 048
     Dates: start: 20170105, end: 20170302
  44. OXYCODONE/ ACETAMINOPHEN TABLETS [Suspect]
     Active Substance: ACETAMINOPHEN\OXYCODONE HYDROCHLORIDE
     Dosage: 7.5?500 MG, 1 TABLET EVERY 6?8 HOURS
     Route: 048
     Dates: start: 20071210, end: 20080515
  45. HYDROCODONE BITARTRATE AND ACETAMINOPHEN [Suspect]
     Active Substance: ACETAMINOPHEN\HYDROCODONE BITARTRATE
     Dosage: 7.5?325 TABLET EVERY 6 HOURS
     Route: 048
     Dates: start: 20130930, end: 20131028
  46. TRAMADOL. [Suspect]
     Active Substance: TRAMADOL
     Indication: PRODUCT USED FOR UNKNOWN INDICATION
     Dosage: 50 MG, UNK
     Route: 048
  47. ENDOCET [Suspect]
     Active Substance: ACETAMINOPHEN\OXYCODONE HYDROCHLORIDE
     Indication: PRODUCT USED FOR UNKNOWN INDICATION
     Dosage: 5?325 MG
     Route: 048
  48. OXYCONTIN [Suspect]
     Active Substance: OXYCODONE HYDROCHLORIDE
     Dosage: 20 MG TABLET, TWICE DAILY
     Route: 048
     Dates: start: 20101015, end: 20101115
  49. OXYCONTIN [Suspect]
     Active Substance: OXYCODONE HYDROCHLORIDE
     Dosage: 20 MG TABLET, TWICE DAILY
     Route: 048
     Dates: start: 20130809, end: 20140113
  50. OXYCODONE/ ACETAMINOPHEN TABLETS [Suspect]
     Active Substance: ACETAMINOPHEN\OXYCODONE HYDROCHLORIDE
     Dosage: 10?325 MG TABLET DAILY OR TWICE DAILY
     Route: 048
     Dates: start: 20130308, end: 20130404
  51. OXYCODONE/ ACETAMINOPHEN TABLETS [Suspect]
     Active Substance: ACETAMINOPHEN\OXYCODONE HYDROCHLORIDE
     Dosage: 10?325 MG TABLET EVERY 6 HOURS
     Route: 048
     Dates: start: 20170302, end: 20170429
  52. OXYCODONE/ ACETAMINOPHEN TABLETS [Suspect]
     Active Substance: ACETAMINOPHEN\OXYCODONE HYDROCHLORIDE
     Dosage: 5?325 MG TABLET TWICE DAILY
     Route: 048
     Dates: start: 20090623, end: 20120615

REACTIONS (10)
  - Chronic kidney disease [Unknown]
  - Thyroid operation [Unknown]
  - Angiopathy [Unknown]
  - Cerebrovascular accident [Unknown]
  - Osteoarthritis [Unknown]
  - Lung disorder [Unknown]
  - Sleep disorder [Unknown]
  - Appendicectomy [Unknown]
  - Cervical spinal stenosis [Unknown]
  - Pulmonary thrombosis [Unknown]
